FAERS Safety Report 20590076 (Version 1)
Quarter: 2022Q1

REPORT INFORMATION
  Report Type: Report from Study
  Country: CA (occurrence: CA)
  Receive Date: 20220314
  Receipt Date: 20220314
  Transmission Date: 20220424
  Serious: Yes (Death, Other)
  Sender: FDA-Public Use
  Company Number: CA-BAYER-2022A025166

PATIENT
  Age: 53 Year
  Sex: Male

DRUGS (5)
  1. STIVARGA [Suspect]
     Active Substance: REGORAFENIB
     Indication: Rectal cancer stage IV
     Dosage: UNK
     Dates: end: 20220216
  2. STIVARGA [Suspect]
     Active Substance: REGORAFENIB
     Indication: Metastases to lung
  3. STIVARGA [Suspect]
     Active Substance: REGORAFENIB
     Indication: Metastases to pelvis
  4. STIVARGA [Suspect]
     Active Substance: REGORAFENIB
     Indication: Metastases to liver
  5. STIVARGA [Suspect]
     Active Substance: REGORAFENIB
     Indication: Metastases to bone

REACTIONS (3)
  - Septic shock [Fatal]
  - Neutropenia [None]
  - Platelet count [None]

NARRATIVE: CASE EVENT DATE: 20220216
